FAERS Safety Report 4976144-2 (Version None)
Quarter: 2006Q2

REPORT INFORMATION
  Report Type: 
  Country: None (occurrence: None)
  Receive Date: 20060411
  Receipt Date: 20060406
  Transmission Date: 20061013
  Serious: Yes (Other)
  Sender: FDA-Public Use
  Company Number: 200611405GDS

PATIENT
  Age: 30 Year
  Sex: Male

DRUGS (1)
  1. CIPROFLOXACIN [Suspect]
     Indication: PROSTATITIS
     Dosage: 1000 MG, TOTAL DAILY, ORAL
     Route: 048

REACTIONS (4)
  - PETECHIAE [None]
  - PHOTOSENSITIVITY REACTION [None]
  - PRURITUS [None]
  - PURPURA [None]
